FAERS Safety Report 25568880 (Version 1)
Quarter: 2025Q3

REPORT INFORMATION
  Report Type: Spontaneous
  Country: EU (occurrence: EU)
  Receive Date: 20250716
  Receipt Date: 20250716
  Transmission Date: 20251021
  Serious: Yes (Hospitalization)
  Sender: NOVO NORDISK
  Company Number: EU-NOVOPROD-1476727

PATIENT
  Sex: Male

DRUGS (2)
  1. CONCIZUMAB [Suspect]
     Active Substance: CONCIZUMAB
     Indication: Product used for unknown indication
  2. NOVOSEVEN [Suspect]
     Active Substance: COAGULATION FACTOR VIIA RECOMBINANT HUMAN
     Indication: Product used for unknown indication

REACTIONS (2)
  - Haematoma muscle [Unknown]
  - Anaemia [Unknown]
